FAERS Safety Report 14843743 (Version 12)
Quarter: 2019Q3

REPORT INFORMATION
  Report Type: Report from Study
  Country: US (occurrence: US)
  Receive Date: 20180503
  Receipt Date: 20190909
  Transmission Date: 20191004
  Serious: Yes (Life-Threatening, Hospitalization, Other)
  Sender: FDA-Public Use
  Company Number: US-ACTELION-A-US2016-144113

PATIENT
  Age: 52 Year
  Sex: Female

DRUGS (25)
  1. OPSUMIT [Suspect]
     Active Substance: MACITENTAN
     Indication: PULMONARY ARTERIAL HYPERTENSION
     Dosage: UNK
     Route: 048
     Dates: start: 20160614
  2. AMBIEN [Concomitant]
     Active Substance: ZOLPIDEM TARTRATE
  3. ADCIRCA [Concomitant]
     Active Substance: TADALAFIL
  4. SPIRONOLACTONE. [Concomitant]
     Active Substance: SPIRONOLACTONE
  5. METOLAZONE. [Suspect]
     Active Substance: METOLAZONE
     Indication: PRODUCT USED FOR UNKNOWN INDICATION
     Dosage: UNK
     Route: 065
     Dates: start: 20180723
  6. FLONASE [Concomitant]
     Active Substance: FLUTICASONE PROPIONATE
  7. POTASSIUM [Concomitant]
     Active Substance: POTASSIUM
     Dosage: UNK
  8. FLUTICASONE PROPIONATE. [Concomitant]
     Active Substance: FLUTICASONE PROPIONATE
  9. ONDANSETRON [Concomitant]
     Active Substance: ONDANSETRON
     Indication: NAUSEA
     Dosage: 4 MG, QD
     Dates: start: 20190715, end: 20190715
  10. INSPRA [Suspect]
     Active Substance: EPLERENONE
     Indication: PRODUCT USED FOR UNKNOWN INDICATION
     Dosage: UNK
     Route: 065
     Dates: start: 20180723
  11. POTASSIUM [Concomitant]
     Active Substance: POTASSIUM
     Dosage: 80 MEQ, UNK
  12. TIZANIDINE HCL [Concomitant]
     Active Substance: TIZANIDINE HYDROCHLORIDE
  13. ZAROXOLYN [Concomitant]
     Active Substance: METOLAZONE
     Indication: PRODUCT USED FOR UNKNOWN INDICATION
     Dosage: UNK, BID
     Route: 065
  14. ZAROXOLYN [Concomitant]
     Active Substance: METOLAZONE
     Dosage: UNK, QD
     Route: 065
  15. MELATONIN [Concomitant]
     Active Substance: MELATONIN
  16. AZITHROMYCIN ANHYDROUS. [Concomitant]
     Active Substance: AZITHROMYCIN ANHYDROUS
  17. ORENITRAM [Suspect]
     Active Substance: TREPROSTINIL
     Indication: PRODUCT USED FOR UNKNOWN INDICATION
     Dosage: UNK
     Route: 065
     Dates: start: 20190419
  18. POTASSIUM [Concomitant]
     Active Substance: POTASSIUM
     Dosage: 40 MEQ, TID
  19. ZOLPIDEM [Concomitant]
     Active Substance: ZOLPIDEM TARTRATE
  20. LEXAPRO [Concomitant]
     Active Substance: ESCITALOPRAM OXALATE
  21. ALLOPURINOL. [Concomitant]
     Active Substance: ALLOPURINOL
  22. ALBUTEROL. [Concomitant]
     Active Substance: ALBUTEROL
  23. WARFARIN [Concomitant]
     Active Substance: WARFARIN
  24. OXYCODONE AND ACETAMINOPHEN [Concomitant]
     Active Substance: ACETAMINOPHEN\OXYCODONE HYDROCHLORIDE
  25. FLECAINIDE [Concomitant]
     Active Substance: FLECAINIDE
     Dosage: UNK
     Dates: start: 20190207

REACTIONS (74)
  - Influenza [Recovered/Resolved with Sequelae]
  - Arrhythmia [Recovered/Resolved]
  - Abdominal pain [Recovered/Resolved]
  - International normalised ratio increased [Unknown]
  - Prothrombin time prolonged [Unknown]
  - Upper respiratory tract infection [Unknown]
  - Dizziness [Recovered/Resolved]
  - Glomerular filtration rate decreased [Not Recovered/Not Resolved]
  - Hypoxia [Recovered/Resolved]
  - Syncope [Recovered/Resolved with Sequelae]
  - Alanine aminotransferase increased [Unknown]
  - Eustachian tube disorder [Unknown]
  - Oedema [Not Recovered/Not Resolved]
  - Renal failure [Not Recovered/Not Resolved]
  - Haematocrit decreased [Unknown]
  - Haemoglobin decreased [Unknown]
  - Nodule [Not Recovered/Not Resolved]
  - Sinus pain [Not Recovered/Not Resolved]
  - Lung infiltration [Recovered/Resolved]
  - Intra-abdominal haematoma [Recovered/Resolved]
  - Oedema peripheral [Recovered/Resolved]
  - Dyspnoea exertional [Not Recovered/Not Resolved]
  - Diarrhoea [Not Recovered/Not Resolved]
  - Pneumonia [Recovered/Resolved]
  - Mental status changes [Recovered/Resolved]
  - Fall [Recovered/Resolved with Sequelae]
  - Limb injury [Recovered/Resolved with Sequelae]
  - Hepatic function abnormal [Unknown]
  - Bundle branch block left [Unknown]
  - Acute kidney injury [Recovered/Resolved]
  - Cough [Recovered/Resolved with Sequelae]
  - Sinus congestion [Not Recovered/Not Resolved]
  - Palpitations [Not Recovered/Not Resolved]
  - Bronchitis [Recovered/Resolved]
  - Pneumonia bacterial [Recovered/Resolved with Sequelae]
  - Oxygen saturation abnormal [Recovered/Resolved with Sequelae]
  - Respiratory failure [Recovered/Resolved with Sequelae]
  - Blood creatinine increased [Not Recovered/Not Resolved]
  - Blood urea increased [Not Recovered/Not Resolved]
  - Dyspnoea [Not Recovered/Not Resolved]
  - White blood cell count increased [Recovering/Resolving]
  - Brain natriuretic peptide increased [Not Recovered/Not Resolved]
  - Muscle spasms [Recovered/Resolved]
  - Pain in extremity [Recovered/Resolved]
  - Atrial fibrillation [Recovered/Resolved]
  - Weight increased [Recovered/Resolved]
  - Hypotension [Not Recovered/Not Resolved]
  - Neck pain [Recovered/Resolved with Sequelae]
  - Skin discolouration [Not Recovered/Not Resolved]
  - Hypokalaemia [Recovered/Resolved]
  - Loss of consciousness [Unknown]
  - Bundle branch block [Recovered/Resolved with Sequelae]
  - Occult blood positive [Unknown]
  - Sinusitis [Not Recovered/Not Resolved]
  - Concomitant disease progression [Unknown]
  - Heart rate increased [Recovered/Resolved]
  - Non-cardiac chest pain [Recovered/Resolved with Sequelae]
  - Haematoma [Unknown]
  - Granuloma [Not Recovered/Not Resolved]
  - Right ventricular systolic pressure increased [Not Recovered/Not Resolved]
  - Chest injury [Recovered/Resolved with Sequelae]
  - Aspartate aminotransferase increased [Unknown]
  - Gout [Unknown]
  - Contusion [Not Recovered/Not Resolved]
  - Headache [Recovered/Resolved]
  - Autonomic dysreflexia [Recovered/Resolved with Sequelae]
  - Rib fracture [Recovered/Resolved with Sequelae]
  - Renal impairment [Recovered/Resolved with Sequelae]
  - Sepsis [Recovered/Resolved with Sequelae]
  - Cholelithiasis [Not Recovered/Not Resolved]
  - Cardiac failure [Recovered/Resolved]
  - Dehydration [Not Recovered/Not Resolved]
  - Medication error [Unknown]
  - Right ventricular failure [Not Recovered/Not Resolved]

NARRATIVE: CASE EVENT DATE: 20160614
